FAERS Safety Report 6552381-0 (Version None)
Quarter: 2010Q1

REPORT INFORMATION
  Report Type: 
  Country: None (occurrence: None)
  Receive Date: 20100126
  Receipt Date: 20100111
  Transmission Date: 20100710
  Serious: Yes (Death, Hospitalization)
  Sender: FDA-Public Use
  Company Number: DE-CUBIST-2010S1000037

PATIENT
  Age: 75 Year
  Sex: Male
  Weight: 73 kg

DRUGS (49)
  1. CUBICIN [Suspect]
     Indication: KLEBSIELLA INFECTION
     Route: 042
     Dates: start: 20091125, end: 20091209
  2. CUBICIN [Suspect]
     Indication: CANDIDIASIS
     Route: 042
     Dates: start: 20091125, end: 20091209
  3. CUBICIN [Suspect]
     Route: 042
     Dates: start: 20091125, end: 20091209
  4. CUBICIN [Suspect]
     Indication: OFF LABEL USE
     Route: 042
     Dates: start: 20091125, end: 20091209
  5. VANCOMYCIN [Concomitant]
     Route: 042
     Dates: start: 20091111, end: 20091130
  6. VANCOMYCIN [Concomitant]
     Route: 042
     Dates: start: 20091109, end: 20091109
  7. DIFLUCAN [Concomitant]
     Route: 042
     Dates: start: 20091125
  8. MEROPENEM [Concomitant]
     Route: 042
     Dates: start: 20091125
  9. ZIENAM [Concomitant]
     Route: 042
     Dates: start: 20091109, end: 20091123
  10. ERYTHROMYCIN [Concomitant]
     Route: 042
     Dates: start: 20091109
  11. SODIUM BICARBONATE [Concomitant]
     Route: 042
     Dates: start: 20091109, end: 20091109
  12. ETOMIDATE [Concomitant]
     Route: 042
     Dates: start: 20091126, end: 20091126
  13. ROCURONIUM BROMIDE [Concomitant]
     Dates: start: 20091126, end: 20091126
  14. POTASSIUM [Concomitant]
     Route: 042
     Dates: start: 20091105, end: 20091203
  15. AMIODARONE [Concomitant]
  16. VASOPRESSIN [Concomitant]
     Route: 042
     Dates: start: 20091109, end: 20091111
  17. NOREPINEPHRINE [Concomitant]
  18. EPINEPHRINE [Concomitant]
  19. DOBUTAMINE HCL [Concomitant]
  20. ACETYLCYSTEINE [Concomitant]
  21. MIDAZOLAM HCL [Concomitant]
  22. METAMIZOLE [Concomitant]
  23. PARACETAMOL [Concomitant]
  24. ILOPROST [Concomitant]
  25. ALBUTEROL [Concomitant]
  26. INSULIN [Concomitant]
     Route: 042
     Dates: start: 20091105, end: 20091205
  27. METOCLOPRAMIDE [Concomitant]
  28. ZOCOR [Concomitant]
     Route: 042
     Dates: start: 20091106, end: 20091113
  29. SUCRALFATE [Concomitant]
     Route: 048
     Dates: start: 20091114
  30. PIRITRAMIDE [Concomitant]
  31. PANTOPRAZOLE [Concomitant]
     Route: 042
     Dates: start: 20091106
  32. FORMOTEROL FUMARATE [Concomitant]
  33. HEPARIN [Concomitant]
  34. ACETYLSALICYLIC ACID [Concomitant]
  35. FUROSEMIDE [Concomitant]
  36. CHLORHEXIDINE GLUCONATE [Concomitant]
  37. PHYSOSTAGMINE [Concomitant]
  38. SALICYLATE [Concomitant]
  39. AMIDOTRIOZATE [Concomitant]
  40. SUFENTANIL [Concomitant]
     Route: 042
     Dates: start: 20091126, end: 20091126
  41. SUFENTANIL [Concomitant]
     Route: 042
     Dates: start: 20091109, end: 20091109
  42. ESKETAMINE [Concomitant]
  43. CHLORAL HYDRATE [Concomitant]
     Route: 042
     Dates: start: 20091114, end: 20091123
  44. VECURONIUM BROMIDE [Concomitant]
  45. ROCURONIUM [Concomitant]
  46. CALCIUM [Concomitant]
  47. MAGNESIUM [Concomitant]
     Route: 042
     Dates: start: 20091106, end: 20091106
  48. GLUCOSE [Concomitant]
     Route: 042
     Dates: start: 20091106
  49. GASTROGRAFIN /00025901/ [Concomitant]
     Dates: start: 20091112, end: 20091125

REACTIONS (14)
  - BLOOD SODIUM DECREASED [None]
  - COLONIC PSEUDO-OBSTRUCTION [None]
  - HAEMATOCRIT DECREASED [None]
  - HAEMOGLOBIN DECREASED [None]
  - HAEMORRHAGIC DIATHESIS [None]
  - HEPATIC FAILURE [None]
  - HYPERBILIRUBINAEMIA [None]
  - IMPAIRED HEALING [None]
  - LARGE INTESTINE PERFORATION [None]
  - MULTI-ORGAN FAILURE [None]
  - PANCREATITIS [None]
  - PERITONITIS [None]
  - SEPSIS [None]
  - WOUND SECRETION [None]
